FAERS Safety Report 10936256 (Version 1)
Quarter: 2015Q1

REPORT INFORMATION
  Report Type: Spontaneous
  Country: US (occurrence: None)
  Receive Date: 20150319
  Receipt Date: 20150319
  Transmission Date: 20150721
  Serious: Yes (Hospitalization)
  Sender: FDA-Public Use
  Company Number: None

PATIENT
  Age: 77 Year
  Sex: Male
  Weight: 62.9 kg

DRUGS (2)
  1. BENDAMUSTINE HYDROCHLORIDE [Suspect]
     Active Substance: BENDAMUSTINE HYDROCHLORIDE
     Dates: end: 20150313
  2. RITUXIMAB (MOAB C2B8 ANTI CD20, CHIMERIC) [Suspect]
     Active Substance: RITUXIMAB
     Dates: end: 20150312

REACTIONS (9)
  - Acidosis [None]
  - Atelectasis [None]
  - Hyperkalaemia [None]
  - Electrocardiogram QRS complex prolonged [None]
  - Haemodialysis [None]
  - Pneumonia [None]
  - Acute kidney injury [None]
  - Tumour lysis syndrome [None]
  - Pleural effusion [None]

NARRATIVE: CASE EVENT DATE: 20150317
